FAERS Safety Report 12004903 (Version 1)
Quarter: 2016Q1

REPORT INFORMATION
  Report Type: Spontaneous
  Country: US (occurrence: US)
  Receive Date: 20160204
  Receipt Date: 20160204
  Transmission Date: 20160526
  Serious: No
  Sender: FDA-Public Use
  Company Number: US-TORRENT-00001067

PATIENT
  Sex: Male
  Weight: 29 kg

DRUGS (1)
  1. RISPERIDONE TABLET [Suspect]
     Active Substance: RISPERIDONE
     Indication: PRODUCT USED FOR UNKNOWN INDICATION
     Dosage: TAKE ONE TABLET BY MOUTH IN THE MORNING AND TWO TABLETS BY MOUTH IN THE EVENING
     Dates: start: 20151106

REACTIONS (3)
  - Dystonia [Recovered/Resolved]
  - Extrapyramidal disorder [Unknown]
  - Adverse event [Unknown]
